FAERS Safety Report 14517379 (Version 2)
Quarter: 2020Q4

REPORT INFORMATION
  Report Type: Other
  Country: US (occurrence: US)
  Receive Date: 20180212
  Receipt Date: 20201215
  Transmission Date: 20210113
  Serious: Yes (Hospitalization, Other)
  Sender: FDA-Public Use
  Company Number: US-ROCHE-2065618

PATIENT
  Sex: Female

DRUGS (1)
  1. OCREVUS [Suspect]
     Active Substance: OCRELIZUMAB
     Indication: RELAPSING MULTIPLE SCLEROSIS
     Dosage: ON 07/SEP/2017, THE PATIENT WAS PRESCRIBED WITH INTRAVENOUS (IV) OCRELIZUMAB INFUSION 300 MG ON DAY
     Route: 042
     Dates: start: 20171006

REACTIONS (11)
  - Tremor [Unknown]
  - Hot flush [Unknown]
  - Depression [Unknown]
  - Multiple sclerosis [Unknown]
  - Hypophagia [Unknown]
  - Seizure [Unknown]
  - Feeling cold [Unknown]
  - Anxiety [Unknown]
  - Insomnia [Unknown]
  - Dyspnoea [Unknown]
  - Muscle spasms [Unknown]
